FAERS Safety Report 6546355-3 (Version None)
Quarter: 2010Q1

REPORT INFORMATION
  Report Type: 
  Country: None (occurrence: None)
  Receive Date: 20100114
  Receipt Date: 20091109
  Transmission Date: 20100710
  Serious: No
  Sender: FDA-Public Use
  Company Number: 2009BM000304

PATIENT
  Age: 39 Year
  Sex: Male
  Weight: 102 kg

DRUGS (2)
  1. KUVAN [Suspect]
     Indication: PHENYLKETONURIA
     Dosage: 2000 MG;QD;PO ; 2000 MG;QD;PO
     Route: 048
     Dates: start: 20080229
  2. KUVAN [Suspect]
     Indication: PHENYLKETONURIA
     Dosage: 2000 MG;QD;PO ; 2000 MG;QD;PO
     Route: 048
     Dates: start: 20091008

REACTIONS (1)
  - NASOPHARYNGITIS [None]
